FAERS Safety Report 10395648 (Version 1)
Quarter: 2014Q3

REPORT INFORMATION
  Report Type: Spontaneous
  Country: AU (occurrence: AU)
  Receive Date: 20140820
  Receipt Date: 20140820
  Transmission Date: 20150326
  Serious: Yes (Other)
  Sender: FDA-Public Use
  Company Number: AU-SA-2014SA110006

PATIENT
  Age: 67 Year
  Sex: Male

DRUGS (1)
  1. BCG FOR IMMUNOTHERAPY [Suspect]
     Active Substance: BCG VACCINE
     Indication: BLADDER CANCER
     Dosage: RECEIVED 18 SESSIONS (THREE CYCLES OF 6 WEEKLY INJECTIONS)
     Route: 043

REACTIONS (8)
  - Intraspinal abscess [Unknown]
  - Tuberculosis bladder [Unknown]
  - Bovine tuberculosis [Unknown]
  - Osteomyelitis [Unknown]
  - Psoas abscess [Unknown]
  - Orchitis [Unknown]
  - Choroid tubercles [Unknown]
  - Infection [Unknown]
